FAERS Safety Report 21836847 (Version 2)
Quarter: 2023Q1

REPORT INFORMATION
  Report Type: Spontaneous
  Country: US (occurrence: US)
  Receive Date: 20230109
  Receipt Date: 20230217
  Transmission Date: 20230418
  Serious: Yes (Other)
  Sender: FDA-Public Use
  Company Number: US-BRISTOL-MYERS SQUIBB COMPANY-2023-003064

PATIENT
  Age: 69 Year
  Sex: Male

DRUGS (2)
  1. POMALYST [Suspect]
     Active Substance: POMALIDOMIDE
     Indication: Plasma cell myeloma
     Dosage: TAKE 1 CAPSULE BY MOUTH ONCE DAILY IN THE MORNING FOR 21 DAYS ON AND 7 DAYS OFF
     Route: 048
     Dates: start: 20221207
  2. POMALYST [Suspect]
     Active Substance: POMALIDOMIDE
     Dosage: TAKE 1 CAPSULE BY MOUTH ONCE DAILY IN THE MORNING FOR 21 DAYS ON AND 7 DAYS OFF
     Route: 048
     Dates: start: 20221212

REACTIONS (3)
  - Gingival disorder [Unknown]
  - Drug ineffective [Unknown]
  - Plasma cell myeloma recurrent [Unknown]
